FAERS Safety Report 9115475 (Version 1)
Quarter: 2013Q1

REPORT INFORMATION
  Report Type: Spontaneous
  Country: US (occurrence: None)
  Receive Date: 20130221
  Receipt Date: 20130221
  Transmission Date: 20140127
  Serious: Yes (Hospitalization, Disabling)
  Sender: FDA-Public Use
  Company Number: None

PATIENT
  Age: 49 Year
  Sex: Female
  Weight: 77.11 kg

DRUGS (1)
  1. XELODA [Suspect]
     Indication: RECTAL CANCER STAGE III
     Route: 048
     Dates: start: 20121114, end: 20121224

REACTIONS (6)
  - Leukoencephalopathy [None]
  - Deafness [None]
  - Rhabdomyolysis [None]
  - Renal failure acute [None]
  - Brain hypoxia [None]
  - Toxicity to various agents [None]
